FAERS Safety Report 14669055 (Version 2)
Quarter: 2018Q3

REPORT INFORMATION
  Report Type: Spontaneous
  Country: ES (occurrence: ES)
  Receive Date: 20180322
  Receipt Date: 20180724
  Transmission Date: 20181010
  Serious: Yes (Hospitalization)
  Sender: FDA-Public Use
  Company Number: ES-TEVA-2018-ES-870024

PATIENT
  Age: 21 Year
  Sex: Female

DRUGS (2)
  1. DROSPIRENONE/ETINILESTRADIOL [Suspect]
     Active Substance: DROSPIRENONE\ETHINYL ESTRADIOL
     Indication: CONTRACEPTION
     Dosage: 3 MG / 0.03 MG FOR 21 DAYS EVERY 28 DAYS
     Route: 048
     Dates: start: 201701, end: 20170206
  2. YASMINELLE 3 MG / 0,02 MG [Concomitant]
     Indication: CONTRACEPTION
     Route: 048
     Dates: end: 201701

REACTIONS (2)
  - Vena cava thrombosis [Recovering/Resolving]
  - Pulmonary embolism [Recovering/Resolving]

NARRATIVE: CASE EVENT DATE: 20170205
